FAERS Safety Report 17197282 (Version 1)
Quarter: 2019Q4

REPORT INFORMATION
  Report Type: Spontaneous
  Country: US (occurrence: US)
  Receive Date: 20191224
  Receipt Date: 20191224
  Transmission Date: 20200122
  Serious: Yes (Hospitalization)
  Sender: FDA-Public Use
  Company Number: US-ASTRAZENECA-2019SF83341

PATIENT
  Age: 68 Year
  Sex: Female
  Weight: 78 kg

DRUGS (1)
  1. BYDUREON [Suspect]
     Active Substance: EXENATIDE
     Indication: TYPE 2 DIABETES MELLITUS
     Route: 058

REACTIONS (4)
  - Blood glucose increased [Unknown]
  - Sinusitis [Unknown]
  - Rheumatoid arthritis [Unknown]
  - Infected bite [Recovered/Resolved]

NARRATIVE: CASE EVENT DATE: 2019
